FAERS Safety Report 9034299 (Version 1)
Quarter: 2013Q1

REPORT INFORMATION
  Report Type: Spontaneous
  Country: US (occurrence: None)
  Receive Date: 20130115
  Receipt Date: 20130115
  Transmission Date: 20140127
  Serious: Yes (Other)
  Sender: FDA-Public Use
  Company Number: DSA_61750_2013

PATIENT
  Age: 62 Year
  Sex: Female

DRUGS (2)
  1. VENLAFAXINE [Suspect]
     Indication: DEPRESSION
     Dosage: (DF)
  2. VENLAFAXINE [Suspect]
     Indication: ANXIETY
     Dosage: (DF)

REACTIONS (3)
  - Diarrhoea [None]
  - Abdominal pain upper [None]
  - Colitis microscopic [None]
